FAERS Safety Report 9802534 (Version 1)
Quarter: 2014Q1

REPORT INFORMATION
  Report Type: Report from Study
  Country: HU (occurrence: HU)
  Receive Date: 20140108
  Receipt Date: 20140108
  Transmission Date: 20141002
  Serious: Yes (Hospitalization)
  Sender: FDA-Public Use
  Company Number: HU-ROCHE-1329491

PATIENT
  Age: 43 Year
  Sex: Female
  Weight: 84.5 kg

DRUGS (6)
  1. MYCOPHENOLATE MOFETIL [Suspect]
     Indication: IMMUNOSUPPRESSION
     Route: 048
     Dates: start: 20121120
  2. PROGRAF [Suspect]
     Indication: IMMUNOSUPPRESSION
     Route: 048
     Dates: start: 20121120
  3. PREDNISOLON [Suspect]
     Indication: IMMUNOSUPPRESSION
     Route: 048
     Dates: start: 20121120
  4. CONTROLOC (HUNGARY) [Concomitant]
     Route: 048
     Dates: start: 20121120
  5. ASPIRIN PROTECT [Concomitant]
     Route: 048
     Dates: start: 20121120
  6. VALCYTE [Concomitant]
     Route: 048
     Dates: start: 20121120, end: 20130401

REACTIONS (1)
  - Kidney transplant rejection [Recovered/Resolved]
